FAERS Safety Report 26112106 (Version 1)
Quarter: 2025Q4

REPORT INFORMATION
  Report Type: Spontaneous
  Country: US (occurrence: None)
  Receive Date: 20251201
  Receipt Date: 20251201
  Transmission Date: 20260117
  Serious: No
  Sender: FDA-CTU
  Company Number: None

PATIENT

DRUGS (2)
  1. OCREVUS [Suspect]
     Active Substance: OCRELIZUMAB
  2. KESIMPTA [Suspect]
     Active Substance: OFATUMUMAB

REACTIONS (5)
  - Product substitution issue [None]
  - Therapeutic response decreased [None]
  - Influenza [None]
  - Abdominal discomfort [None]
  - Dehydration [None]
